FAERS Safety Report 6329968-3 (Version None)
Quarter: 2009Q3

REPORT INFORMATION
  Report Type: 
  Country: None (occurrence: None)
  Receive Date: 20090825
  Receipt Date: 20090813
  Transmission Date: 20100115
  Serious: Yes (Other)
  Sender: FDA-Public Use
  Company Number: 090820-0000929

PATIENT
  Age: 73 Year
  Sex: Male

DRUGS (2)
  1. INDOCIN [Suspect]
     Indication: BACK PAIN
  2. DICLOFENAC (DICLOFENAC) [Suspect]
     Indication: BACK PAIN

REACTIONS (8)
  - BLOOD ALBUMIN DECREASED [None]
  - COLONIC POLYP [None]
  - GASTROINTESTINAL EROSION [None]
  - HAEMOGLOBIN DECREASED [None]
  - INTESTINAL DIAPHRAGM DISEASE [None]
  - SMALL INTESTINAL HAEMORRHAGE [None]
  - SYNCOPE [None]
  - VOMITING [None]
